FAERS Safety Report 21453706 (Version 1)
Quarter: 2022Q4

REPORT INFORMATION
  Report Type: Report from Study
  Country: US (occurrence: US)
  Receive Date: 20221013
  Receipt Date: 20221013
  Transmission Date: 20230113
  Serious: Yes (Hospitalization)
  Sender: FDA-Public Use
  Company Number: US-GILEAD-2022-0601298

PATIENT
  Age: 48 Year
  Sex: Female
  Weight: 79.7 kg

DRUGS (3)
  1. SACITUZUMAB GOVITECAN [Suspect]
     Active Substance: SACITUZUMAB GOVITECAN
     Indication: Breast cancer metastatic
     Dosage: 10 MG/KG, UNK CYCLE
     Route: 042
     Dates: start: 20220128
  2. SACITUZUMAB GOVITECAN [Suspect]
     Active Substance: SACITUZUMAB GOVITECAN
     Dosage: 7.5 MG/KG, D1 AND D8 Q 21
     Route: 042
     Dates: end: 20220930
  3. PEMBROLIZUMAB [Suspect]
     Active Substance: PEMBROLIZUMAB
     Indication: Breast cancer metastatic
     Dosage: 200 MG, Q3WK
     Route: 042
     Dates: start: 20220128, end: 20220930

REACTIONS (1)
  - Pain [Unknown]

NARRATIVE: CASE EVENT DATE: 20221007
